FAERS Safety Report 7656913-0 (Version None)
Quarter: 2011Q3

REPORT INFORMATION
  Report Type: 
  Country: None (occurrence: None)
  Receive Date: 20110729
  Receipt Date: 20110714
  Transmission Date: 20111222
  Serious: Yes (Life-Threatening, Hospitalization)
  Sender: FDA-Public Use
  Company Number: LMI-2011-00575

PATIENT
  Age: 70 Year
  Sex: Male
  Weight: 108.8633 kg

DRUGS (3)
  1. PREDNISONE [Concomitant]
  2. ABLAVAR [Suspect]
     Indication: ANGIOGRAM
     Dosage: (15 ML), INTRAVENOUS BOLUS VIA OWER INJECTOR
     Route: 040
     Dates: start: 20110714, end: 20110714
  3. ABLAVAR [Suspect]
     Indication: PERIPHERAL VASCULAR DISORDER
     Dosage: (15 ML), INTRAVENOUS BOLUS VIA OWER INJECTOR
     Route: 040
     Dates: start: 20110714, end: 20110714

REACTIONS (4)
  - DYSPNOEA [None]
  - RESTLESSNESS [None]
  - LOSS OF CONSCIOUSNESS [None]
  - CARDIO-RESPIRATORY ARREST [None]
